FAERS Safety Report 11344428 (Version 1)
Quarter: 2015Q3

REPORT INFORMATION
  Report Type: Spontaneous
  Country: US (occurrence: None)
  Receive Date: 20150805
  Receipt Date: 20150805
  Transmission Date: 20151125
  Serious: No
  Sender: FDA-Public Use
  Company Number: None

PATIENT
  Age: 6 Year
  Sex: Female
  Weight: 21.32 kg

DRUGS (8)
  1. ZYRTEC [Suspect]
     Active Substance: CETIRIZINE HYDROCHLORIDE
     Indication: EYE PRURITUS
     Dates: start: 20150618, end: 20150619
  2. ZYRTEC [Suspect]
     Active Substance: CETIRIZINE HYDROCHLORIDE
     Indication: RHINORRHOEA
     Dates: start: 20150618, end: 20150619
  3. VITAMIN C [Concomitant]
     Active Substance: ASCORBIC ACID
  4. MULTI VITAMIN [Concomitant]
     Active Substance: VITAMINS
     Indication: HYPERSENSITIVITY
  5. ZYRTEC [Suspect]
     Active Substance: CETIRIZINE HYDROCHLORIDE
     Indication: HYPERSENSITIVITY
     Dates: start: 20150618, end: 20150619
  6. MULTI VITAMIN [Concomitant]
     Active Substance: VITAMINS
     Indication: EYE PRURITUS
  7. VITAMIN D3 [Concomitant]
     Active Substance: CHOLECALCIFEROL
  8. MULTI VITAMIN [Concomitant]
     Active Substance: VITAMINS
     Indication: RHINORRHOEA

REACTIONS (5)
  - Nervousness [None]
  - Mood altered [None]
  - Aggression [None]
  - Mental disorder [None]
  - Muscle twitching [None]

NARRATIVE: CASE EVENT DATE: 20150619
